FAERS Safety Report 20057904 (Version 1)
Quarter: 2021Q4

REPORT INFORMATION
  Report Type: Spontaneous
  Country: US (occurrence: US)
  Receive Date: 20211111
  Receipt Date: 20211111
  Transmission Date: 20220303
  Serious: Yes (Other)
  Sender: FDA-Public Use
  Company Number: US-GILEAD-2021-0556043

PATIENT
  Age: 72 Year
  Sex: Female

DRUGS (3)
  1. VIREAD [Suspect]
     Active Substance: TENOFOVIR DISOPROXIL FUMARATE
     Indication: Chronic hepatitis B
     Dosage: UNK
     Route: 065
  2. IBANDRONATE SODIUM [Concomitant]
     Active Substance: IBANDRONATE SODIUM
  3. DENOSUMAB [Concomitant]
     Active Substance: DENOSUMAB

REACTIONS (3)
  - Femur fracture [Recovering/Resolving]
  - Cervical vertebral fracture [Recovering/Resolving]
  - Fanconi syndrome acquired [Recovering/Resolving]
